FAERS Safety Report 14090485 (Version 2)
Quarter: 2017Q4

REPORT INFORMATION
  Report Type: Report from Study
  Country: JP (occurrence: JP)
  Receive Date: 20171015
  Receipt Date: 20171115
  Transmission Date: 20180321
  Serious: Yes (Hospitalization, Other)
  Sender: FDA-Public Use
  Company Number: JP-BRISTOL-MYERS SQUIBB COMPANY-BMS-2017-091128

PATIENT
  Age: 75 Year
  Sex: Female
  Weight: 43 kg

DRUGS (1)
  1. APIXABAN [Suspect]
     Active Substance: APIXABAN
     Indication: PULMONARY EMBOLISM
     Dosage: 5 MG, BID
     Route: 048
     Dates: start: 20161004

REACTIONS (2)
  - Prescribed underdose [Unknown]
  - Intraductal papillary mucinous neoplasm [Recovered/Resolved]

NARRATIVE: CASE EVENT DATE: 20170420
